FAERS Safety Report 12423081 (Version 3)
Quarter: 2016Q3

REPORT INFORMATION
  Report Type: Spontaneous
  Country: US (occurrence: US)
  Receive Date: 20160601
  Receipt Date: 20160816
  Transmission Date: 20161109
  Serious: No
  Sender: FDA-Public Use
  Company Number: US-PFIZER INC-2016280472

PATIENT
  Age: 64 Year
  Sex: Female

DRUGS (2)
  1. LEVOCETIRIZINE [Concomitant]
     Active Substance: LEVOCETIRIZINE
     Indication: HYPERSENSITIVITY
     Dosage: 5 MG, 1X/DAY (QHS)
     Route: 048
     Dates: start: 2015
  2. ESTRING [Suspect]
     Active Substance: ESTRADIOL
     Indication: ATROPHIC VULVOVAGINITIS
     Dosage: 2 MG, EVERY 3 MONTHS (EVERY 90 DAYS)
     Route: 067
     Dates: start: 201109

REACTIONS (2)
  - Muscle spasms [Recovered/Resolved]
  - Drug ineffective [Unknown]

NARRATIVE: CASE EVENT DATE: 20160510
